FAERS Safety Report 5007803-3 (Version None)
Quarter: 2006Q2

REPORT INFORMATION
  Report Type: 
  Country: None (occurrence: None)
  Receive Date: 20060522
  Receipt Date: 20060515
  Transmission Date: 20061013
  Serious: Yes (Hospitalization)
  Sender: FDA-Public Use
  Company Number: TN-GLAXOSMITHKLINE-B0424376A

PATIENT
  Age: 45 Year
  Sex: Male

DRUGS (4)
  1. DEROXAT [Suspect]
     Indication: ANXIETY DISORDER
     Dosage: 20MG PER DAY
     Dates: start: 20060301, end: 20060315
  2. LEXOMIL [Suspect]
     Dosage: 1TAB PER DAY
  3. TOTAPEN [Concomitant]
     Indication: BRONCHITIS
  4. BEER [Concomitant]
     Dosage: 9Z PER DAY

REACTIONS (3)
  - BRAIN OEDEMA [None]
  - CONVULSION [None]
  - GRAND MAL CONVULSION [None]
